FAERS Safety Report 8667254 (Version 3)
Quarter: 2013Q1

REPORT INFORMATION
  Report Type: Spontaneous
  Country: US (occurrence: US)
  Receive Date: 20120717
  Receipt Date: 20130118
  Transmission Date: 20140127
  Serious: Yes (Other)
  Sender: FDA-Public Use
  Company Number: US-PFIZER INC-2012166285

PATIENT
  Age: 77 Year
  Sex: Female

DRUGS (13)
  1. LYRICA [Suspect]
     Dosage: 50 MG, 2X/DAY
     Route: 048
  2. AGGRENOX [Concomitant]
     Dosage: ACETYLSALICYLIC ACID 25 / DIPYRIDAMOLE 200MG, 2X/DAY
  3. LEVOTHROID [Concomitant]
     Dosage: 150 MG, DAILY
  4. OGEN [Concomitant]
     Dosage: 1.25 MG, DAILY
  5. ATENOLOL [Concomitant]
     Dosage: 12.5 MG, DAILY
  6. ACTONEL [Concomitant]
     Dosage: 30 MG, WEEKLY
  7. NEXIUM [Concomitant]
     Dosage: 40 MG, DAILY
  8. ACETYLSALICYLIC ACID [Concomitant]
     Dosage: 81 MG, DAILY
  9. NASONEX [Concomitant]
     Dosage: UNK, DAILY
  10. NITROGLYCERIN [Concomitant]
     Indication: CHEST PAIN
     Dosage: UNK, AS NEEDED
     Route: 060
  11. XANAX [Concomitant]
     Indication: INSOMNIA
     Dosage: 0.5 MG, 1/2 TABLET AT BED TIME AS NEEDED
  12. DARVOCET-N [Concomitant]
     Indication: HEADACHE
     Dosage: 100 UNK, AS NEEDED
  13. DARVOCET-N [Concomitant]
     Indication: NECK PAIN

REACTIONS (8)
  - Cerebrovascular disorder [Unknown]
  - Polyneuropathy [Unknown]
  - Headache [Recovering/Resolving]
  - Carpal tunnel syndrome [Unknown]
  - Fall [Unknown]
  - Head injury [Unknown]
  - Balance disorder [Unknown]
  - Sensory disturbance [Unknown]
